FAERS Safety Report 5093108-1 (Version None)
Quarter: 2006Q3

REPORT INFORMATION
  Report Type: 
  Country: None (occurrence: None)
  Receive Date: 20060828
  Receipt Date: 20060815
  Transmission Date: 20061208
  Serious: Yes (Hospitalization)
  Sender: FDA-Public Use
  Company Number: GXKR2006GB04775

PATIENT
  Age: 82 Year
  Sex: Female

DRUGS (10)
  1. ASPIRIN [Suspect]
     Indication: BACK PAIN
     Dosage: 75 MG, QD, ORAL
     Route: 048
     Dates: start: 20060523
  2. DICLOFENAC (DICLOFENAC) [Suspect]
     Indication: BACK PAIN
     Dosage: 50 MG, TID, ORAL
     Route: 048
     Dates: start: 20060523
  3. BETAHISTINE (BETAHISTINE) [Concomitant]
  4. CINNARIZINE (CINNARIZINE) [Concomitant]
  5. CO-AMILOFRUSE (AMILORIDE HYDROCHLORIDE, FUROSEMIDE) [Concomitant]
  6. CODEINE (CODEINE) [Concomitant]
  7. FELODIPINE [Concomitant]
  8. ISOSORBIDE MONONITRATE (ISOSORBIDE MNONITRATE) [Concomitant]
  9. NICORANDIL (NICORANDIL) [Concomitant]
  10. TRIPTAFEN (AMITRIPTYLINE HYDROCHLORIDE, PERPHENAZINE) [Concomitant]

REACTIONS (3)
  - DIZZINESS [None]
  - DYSPNOEA [None]
  - HAEMOGLOBIN DECREASED [None]
